FAERS Safety Report 7809751-X (Version None)
Quarter: 2011Q4

REPORT INFORMATION
  Report Type: 
  Country: None (occurrence: None)
  Receive Date: 20111012
  Receipt Date: 20111006
  Transmission Date: 20120403
  Serious: Yes (Death, Hospitalization, Other)
  Sender: FDA-Public Use
  Company Number: US-ELI_LILLY_AND_COMPANY-US201110002033

PATIENT
  Sex: Male

DRUGS (2)
  1. ALIMTA [Suspect]
     Dosage: UNK
     Dates: start: 20110207
  2. GEMZAR [Suspect]
     Indication: MALIGNANT NEOPLASM OF PLEURA
     Dosage: UNK
     Dates: start: 20110411

REACTIONS (3)
  - DEATH [None]
  - DISEASE COMPLICATION [None]
  - NEOPLASM PROGRESSION [None]
